FAERS Safety Report 19575750 (Version 1)
Quarter: 2021Q3

REPORT INFORMATION
  Report Type: Spontaneous
  Country: US (occurrence: US)
  Receive Date: 20210717
  Receipt Date: 20210717
  Transmission Date: 20211014
  Serious: No
  Sender: FDA-Public Use
  Company Number: None

PATIENT
  Age: 66 Year
  Sex: Male
  Weight: 77.4 kg

DRUGS (4)
  1. BIO?IDENTICQL HORMONE REPLACEMENT CREAM [Concomitant]
  2. NEUTROGENA BEACH DEFENSE WATER PLUS SUN PROTECTION SUNSCREEN BROAD SPECTRUM SPF30 [Suspect]
     Active Substance: AVOBENZONE\HOMOSALATE\OCTISALATE\OCTOCRYLENE\OXYBENZONE
     Indication: PROPHYLAXIS AGAINST SOLAR RADIATION
     Dosage: QUANTITY:240 SPRAY(S);?
     Route: 061
     Dates: start: 20180701, end: 20210714
  3. VITAMIN D [Concomitant]
     Active Substance: VITAMIN D NOS
  4. NEUTROGENA BEACH DEFENSE WATER PLUS SUN PROTECTION SUNSCREEN BROAD SPECTRUM SPF30 [Suspect]
     Active Substance: AVOBENZONE\HOMOSALATE\OCTISALATE\OCTOCRYLENE\OXYBENZONE
     Dosage: QUANTITY:184 SPRAY(S);?
     Route: 061

REACTIONS (2)
  - Red blood cell count decreased [None]
  - Recalled product administered [None]

NARRATIVE: CASE EVENT DATE: 20210714
